FAERS Safety Report 8910608 (Version 9)
Quarter: 2013Q2

REPORT INFORMATION
  Report Type: Report from Study
  Country: JP (occurrence: JP)
  Receive Date: 20121114
  Receipt Date: 20130612
  Transmission Date: 20140414
  Serious: Yes (Hospitalization)
  Sender: FDA-Public Use
  Company Number: JP-GLAXOSMITHKLINE-B0841833A

PATIENT
  Age: 64 Year
  Sex: Male

DRUGS (5)
  1. REVOLADE [Suspect]
     Indication: CHRONIC HEPATITIS C
     Dosage: 12.5MG PER DAY
     Route: 048
     Dates: start: 20120829, end: 20121024
  2. PEGINTERFERON ALFA-2A [Suspect]
     Route: 058
     Dates: start: 20120912, end: 20121003
  3. PEGINTERFERON ALFA-2A [Suspect]
     Route: 058
     Dates: start: 20121009, end: 20121009
  4. PEGINTERFERON ALFA-2A [Suspect]
     Route: 058
     Dates: start: 20121017, end: 20121017
  5. REBETOL [Suspect]
     Dosage: 300MG TWICE PER DAY
     Route: 048
     Dates: start: 20120912, end: 20121024

REACTIONS (3)
  - Liver injury [Recovered/Resolved]
  - Hepatocellular carcinoma [Not Recovered/Not Resolved]
  - Thrombocytosis [Recovered/Resolved]
